FAERS Safety Report 15712108 (Version 3)
Quarter: 2019Q1

REPORT INFORMATION
  Report Type: Report from Study
  Country: DE (occurrence: DE)
  Receive Date: 20181212
  Receipt Date: 20190109
  Transmission Date: 20190417
  Serious: Yes (Hospitalization, Other)
  Sender: FDA-Public Use
  Company Number: DE-LEO PHARMA-314810

PATIENT
  Age: 16 Year
  Sex: Male

DRUGS (1)
  1. PROTOPIC [Suspect]
     Active Substance: TACROLIMUS
     Indication: DERMATITIS ATOPIC
     Route: 061

REACTIONS (2)
  - Foot fracture [Recovered/Resolved]
  - Dysplastic naevus [Unknown]

NARRATIVE: CASE EVENT DATE: 201805
